FAERS Safety Report 25526359 (Version 2)
Quarter: 2025Q3

REPORT INFORMATION
  Report Type: Report from Study
  Country: US (occurrence: US)
  Receive Date: 20250707
  Receipt Date: 20250717
  Transmission Date: 20251021
  Serious: Yes (Other)
  Sender: BAUSCH AND LOMB
  Company Number: US-BAUSCH-BH-2025-014127

PATIENT
  Age: 44 Year
  Sex: Female

DRUGS (38)
  1. XIFAXAN [Suspect]
     Active Substance: RIFAXIMIN
     Indication: Product used for unknown indication
     Route: 048
     Dates: start: 20250305
  2. TYLENOL [Concomitant]
     Active Substance: ACETAMINOPHEN
     Indication: Product used for unknown indication
     Route: 048
  3. PROAIR HFA [Concomitant]
     Active Substance: ALBUTEROL SULFATE
     Indication: Wheezing
     Dosage: 2 PUFFS TOTAL; (PROAIR, PROVENTIL VENTOLIN HFA)
     Dates: start: 20241026
  4. CALCIUM CARBONATE [Concomitant]
     Active Substance: CALCIUM CARBONATE
     Indication: Product used for unknown indication
     Route: 048
     Dates: start: 20230317
  5. COREG [Concomitant]
     Active Substance: CARVEDILOL
     Indication: Product used for unknown indication
     Route: 048
     Dates: start: 20250106, end: 20250519
  6. ZYRTEC [Concomitant]
     Active Substance: CETIRIZINE HYDROCHLORIDE
     Indication: Hypersensitivity
     Route: 048
  7. CHOLECALCIFEROL, VITAMIN D3 [Concomitant]
  8. KLONOPIN [Concomitant]
     Active Substance: CLONAZEPAM
     Indication: Anxiety
     Dosage: BY MOUTH DAILY AS NEEDED
     Route: 048
     Dates: start: 20250415, end: 20250520
  9. CYANOCOBALAMIN VITAMIN B12 [Concomitant]
     Route: 048
  10. CYCLOBENZAPRINE [Concomitant]
     Active Substance: CYCLOBENZAPRINE
     Indication: Muscle spasms
     Route: 048
     Dates: start: 20250108, end: 20250529
  11. DICYCLOMINE (BENTYL) [Concomitant]
     Indication: Abdominal discomfort
     Route: 048
     Dates: start: 20250217
  12. DICYCLOMINE (BENTYL) [Concomitant]
     Indication: Muscle spasms
  13. DOXEPIN (SINEQUAN) [Concomitant]
     Indication: Insomnia
     Route: 048
     Dates: start: 20250216, end: 20250520
  14. EPINEPHRINE [Concomitant]
     Active Substance: EPINEPHRINE
     Indication: Hypersensitivity
     Route: 030
     Dates: start: 20240719
  15. FERROUS SULFATE [Concomitant]
     Active Substance: FERROUS SULFATE
     Indication: Product used for unknown indication
     Dosage: (65 MG IRON)
     Route: 048
     Dates: start: 20240803, end: 20250424
  16. FLUTICASONE PROPION-SALMETEROL (ADVAIR DISKUS) [Concomitant]
     Indication: Product used for unknown indication
     Dosage: 250-50 MCG/DOSE INHALER
     Dates: start: 20241026
  17. FOLIC ACID [Concomitant]
     Active Substance: FOLIC ACID
     Indication: Product used for unknown indication
     Route: 048
     Dates: start: 20230818
  18. LASIX [Concomitant]
     Active Substance: FUROSEMIDE
     Indication: Product used for unknown indication
     Route: 048
  19. HYDROCODONE- ACETAMINOPHEN (NORCO 5/325) [Concomitant]
     Indication: Pain
     Dates: start: 20240924, end: 20250529
  20. HYDROCORTISONE (CORTIZONE-10) [Concomitant]
     Indication: Pruritus
     Dosage: APPLY 1 APPLICATION TO AFFECTED AREA AT BED TIME AS NEEDED
     Route: 061
     Dates: start: 20250219
  21. HYDROXYZINE PAMOATE (VISTARIL) [Concomitant]
     Indication: Pruritus
     Route: 048
     Dates: start: 20241025, end: 20250512
  22. HYOSCYAMINE (LEVSIN) [Concomitant]
     Indication: Muscle spasms
     Dosage: HYOSCYAMINE (ANASPAZ, LEVSION) 0.125 MG
     Route: 048
     Dates: start: 20240704
  23. LEVONORGESTREL (MIRENA) [Concomitant]
     Indication: Product used for unknown indication
     Route: 015
  24. MAGNESIUM [Concomitant]
     Active Substance: MAGNESIUM
     Indication: Product used for unknown indication
     Route: 048
  25. REMERON [Concomitant]
     Active Substance: MIRTAZAPINE
     Route: 048
     Dates: start: 20250415, end: 20250519
  26. NAPHAZOLINE-PHENIRAMINE [Concomitant]
     Indication: Product used for unknown indication
     Route: 047
  27. PROMETHAZINE (PHENERGAN) [Concomitant]
     Indication: Nausea
     Route: 048
     Dates: start: 20250217
  28. SPIRONOLACTONE (ALDACTONE) [Concomitant]
     Route: 048
     Dates: start: 20250219
  29. THIAMINE (VITAMIN B1) [Concomitant]
     Indication: Product used for unknown indication
     Dates: start: 20240803
  30. TIRZEPATIDE [Concomitant]
     Active Substance: TIRZEPATIDE
     Route: 058
     Dates: start: 20250306
  31. TORSEMIDE (DEMADEX) [Concomitant]
     Indication: Product used for unknown indication
     Route: 048
     Dates: start: 20250305, end: 20250507
  32. VITAMIN E [Concomitant]
     Active Substance: .ALPHA.-TOCOPHEROL
     Indication: Product used for unknown indication
     Dosage: VITAMIN E ACETAT
     Route: 048
  33. ZINC CITRATE [Concomitant]
     Active Substance: ZINC CITRATE
     Route: 048
  34. XARELTO [Concomitant]
     Active Substance: RIVAROXABAN
     Indication: Product used for unknown indication
  35. PROAIR HFA [Concomitant]
     Active Substance: ALBUTEROL SULFATE
     Indication: Wheezing
     Dosage: 2 PUFFS TOTAL
     Dates: start: 20241026
  36. PROVENTIL [Concomitant]
     Active Substance: ALBUTEROL
     Indication: Wheezing
     Dosage: 2 PUFFS TOTAL
     Dates: start: 20241026
  37. VENTOLIN HFA [Concomitant]
     Active Substance: ALBUTEROL SULFATE
     Indication: Wheezing
     Dosage: 2 PUFFS TOTAL
     Dates: start: 20241026
  38. ANASPAZ [Concomitant]
     Active Substance: HYOSCYAMINE SULFATE
     Indication: Muscle spasms
     Dosage: HYOSCYAMINE (ANASPAZ, LEVSION) 0.125 MG
     Route: 048
     Dates: start: 20240704

REACTIONS (26)
  - Aortic thrombosis [Unknown]
  - Portal vein thrombosis [Unknown]
  - Cirrhosis alcoholic [Unknown]
  - Weight increased [Unknown]
  - Fatigue [Unknown]
  - Headache [Unknown]
  - Otorrhoea [Unknown]
  - Epistaxis [Unknown]
  - Sinus congestion [Unknown]
  - Dry mouth [Unknown]
  - Eye pain [Unknown]
  - Eye discharge [Unknown]
  - Dry eye [Unknown]
  - Chest pain [Unknown]
  - Palpitations [Unknown]
  - Peripheral swelling [Unknown]
  - Joint swelling [Unknown]
  - Dyspnoea [Unknown]
  - Wheezing [Unknown]
  - Micturition urgency [Unknown]
  - Pollakiuria [Unknown]
  - Myalgia [Unknown]
  - Back pain [Unknown]
  - Arthralgia [Unknown]
  - Haemorrhage [Unknown]
  - Abdominal pain [Unknown]
